FAERS Safety Report 13875608 (Version 1)
Quarter: 2017Q3

REPORT INFORMATION
  Report Type: Spontaneous
  Country: US (occurrence: US)
  Receive Date: 20170817
  Receipt Date: 20170817
  Transmission Date: 20171127
  Serious: Yes (Death, Other)
  Sender: FDA-Public Use
  Company Number: US-009507513-1708USA004747

PATIENT
  Age: 24 Year
  Sex: Male

DRUGS (1)
  1. CUBICIN [Suspect]
     Active Substance: DAPTOMYCIN
     Dosage: 250 ML, ONCE
     Route: 042
     Dates: start: 20170713, end: 20170715

REACTIONS (2)
  - Effusion [Unknown]
  - Subdural haematoma [Fatal]

NARRATIVE: CASE EVENT DATE: 201707
